FAERS Safety Report 18594730 (Version 1)
Quarter: 2020Q4

REPORT INFORMATION
  Report Type: Spontaneous
  Country: US (occurrence: US)
  Receive Date: 20201208
  Receipt Date: 20201208
  Transmission Date: 20210114
  Serious: Yes (Hospitalization)
  Sender: FDA-Public Use
  Company Number: None

PATIENT
  Sex: Female

DRUGS (11)
  1. RITUXAN [Suspect]
     Active Substance: RITUXIMAB
     Indication: RHEUMATOID ARTHRITIS
     Dosage: ?          OTHER FREQUENCY:Q4-6M;?
     Route: 042
     Dates: start: 20180128
  2. FUROSEMIDE. [Concomitant]
     Active Substance: FUROSEMIDE
  3. METOPROLOL SUC ER [Concomitant]
  4. MS CONTIN [Concomitant]
     Active Substance: MORPHINE SULFATE
  5. SIMVASTATIN. [Concomitant]
     Active Substance: SIMVASTATIN
  6. CIMZIA PREFL KIT [Concomitant]
  7. DEXAMETHASON [Concomitant]
     Active Substance: DEXAMETHASONE
  8. PREDNISONE. [Concomitant]
     Active Substance: PREDNISONE
  9. MIRALAX [Concomitant]
     Active Substance: POLYETHYLENE GLYCOL 3350
  10. ASPIRIN EC [Concomitant]
     Active Substance: ASPIRIN
  11. PERCOCET [Concomitant]
     Active Substance: ACETAMINOPHEN\OXYCODONE HYDROCHLORIDE

REACTIONS (1)
  - Aneurysm [None]
